FAERS Safety Report 8099961-1 (Version None)
Quarter: 2012Q1

REPORT INFORMATION
  Report Type: 
  Country: None (occurrence: None)
  Receive Date: 20120129
  Receipt Date: 20111128
  Transmission Date: 20120608
  Serious: No
  Sender: FDA-Public Use
  Company Number: US-ABBOTT-11P-163-0878420-00

PATIENT
  Age: 22 Year
  Sex: Female

DRUGS (6)
  1. IRON [Concomitant]
     Indication: SUPPLEMENTATION THERAPY
  2. HUMIRA [Suspect]
     Indication: CROHN'S DISEASE
     Dates: start: 20111001
  3. GLUCOPHATE [Concomitant]
     Indication: POLYCYSTIC OVARIES
     Route: 048
  4. SYNTHROID [Concomitant]
     Indication: HYPOTHYROIDISM
     Dosage: 0.75MG FOR 3 DAYS THEN 0.50MG FOR 4 DAYS
     Route: 048
  5. VITAMIN B-12 [Concomitant]
     Indication: SUPPLEMENTATION THERAPY
  6. VITAMIN D [Concomitant]
     Indication: SUPPLEMENTATION THERAPY

REACTIONS (2)
  - INJECTION SITE PAPULE [None]
  - INCORRECT DOSE ADMINISTERED [None]
